FAERS Safety Report 9214335 (Version 2)
Quarter: 2013Q2

REPORT INFORMATION
  Report Type: Spontaneous
  Country: JP (occurrence: JP)
  Receive Date: 20130405
  Receipt Date: 20130419
  Transmission Date: 20140414
  Serious: Yes (Other)
  Sender: FDA-Public Use
  Company Number: JP-PFIZER INC-2013100005

PATIENT
  Age: 73 Year
  Sex: Male

DRUGS (7)
  1. SULPERAZON [Suspect]
     Dosage: 1 G, 1X/DAY
     Route: 042
  2. SOLU-MEDROL [Suspect]
     Indication: HENOCH-SCHONLEIN PURPURA
     Dosage: 1 G, 1X/DAY
     Route: 042
  3. SOLU-MEDROL [Suspect]
     Indication: STEROID THERAPY
  4. PREDNISOLONE [Suspect]
     Indication: HENOCH-SCHONLEIN PURPURA
     Dosage: UNK
  5. RIVAROXABAN [Concomitant]
     Dosage: UNK
  6. LEVETIRACETAM [Concomitant]
     Dosage: UNK
  7. ESOMEPRAZOLE [Concomitant]
     Dosage: UNK

REACTIONS (2)
  - Large intestine perforation [Unknown]
  - Peritonitis [Unknown]
